FAERS Safety Report 9347162 (Version 1)
Quarter: 2013Q2

REPORT INFORMATION
  Report Type: Other
  Country: NO (occurrence: NO)
  Receive Date: 20130613
  Receipt Date: 20130613
  Transmission Date: 20140414
  Serious: Yes (Disabling)
  Sender: FDA-Public Use
  Company Number: NO-WATSON-2013-10657

PATIENT
  Age: 38 Year
  Sex: Male

DRUGS (4)
  1. METHOTREXATE (UNKNOWN) [Suspect]
     Indication: PSORIATIC ARTHROPATHY
     Dosage: 20 MG, EVERY WEEK
     Route: 048
     Dates: start: 2004, end: 2007
  2. BUSPIRONE HYDROCHLORIDE [Suspect]
     Indication: ANXIETY
     Dosage: 15 MG, UNKNOWN
     Route: 065
     Dates: start: 2005, end: 2005
  3. EFEXOR [Suspect]
     Indication: ANXIETY
     Dosage: 75 MG, UNKNOWN
     Route: 065
     Dates: start: 2005, end: 2006
  4. ZYPREXA [Suspect]
     Indication: ANXIETY
     Dosage: 10 MG, UNKNOWN
     Route: 065

REACTIONS (6)
  - Cognitive disorder [Recovering/Resolving]
  - Social problem [Recovering/Resolving]
  - Tardive dyskinesia [Recovering/Resolving]
  - Motor dysfunction [Recovering/Resolving]
  - Apraxia [Recovering/Resolving]
  - Drug interaction [Recovering/Resolving]
